FAERS Safety Report 5296216-5 (Version None)
Quarter: 2007Q2

REPORT INFORMATION
  Report Type: 
  Country: None (occurrence: None)
  Receive Date: 20070413
  Receipt Date: 20070404
  Transmission Date: 20071010
  Serious: Yes (Hospitalization)
  Sender: FDA-Public Use
  Company Number: FR-GLAXOSMITHKLINE-B0464964A

PATIENT
  Age: 92 Year
  Sex: Female

DRUGS (7)
  1. DEROXAT [Suspect]
     Indication: DRUG USE FOR UNKNOWN INDICATION
     Dosage: 1UNIT PER DAY
     Route: 048
     Dates: start: 20060825, end: 20061005
  2. INDAPAMIDE [Suspect]
     Dosage: 1UNIT PER DAY
     Route: 048
     Dates: start: 20060926, end: 20061005
  3. TARKA [Concomitant]
  4. VISKEN [Concomitant]
  5. CREON [Concomitant]
  6. KARDEGIC [Concomitant]
  7. ATARAX [Concomitant]

REACTIONS (3)
  - FAILURE TO THRIVE [None]
  - HYPONATRAEMIA [None]
  - SINUS BRADYCARDIA [None]
